FAERS Safety Report 10607952 (Version 1)
Quarter: 2014Q4

REPORT INFORMATION
  Report Type: Spontaneous
  Country: US (occurrence: US)
  Receive Date: 20141125
  Receipt Date: 20141125
  Transmission Date: 20150529
  Serious: No
  Sender: FDA-Public Use
  Company Number: US-BRISTOL-MYERS SQUIBB COMPANY-21363064

PATIENT
  Age: 67 Year
  Sex: Male
  Weight: 114.28 kg

DRUGS (3)
  1. FARXIGA [Suspect]
     Active Substance: DAPAGLIFLOZIN PROPANEDIOL
     Route: 048
  2. GLUCOPHAGE [Concomitant]
     Active Substance: METFORMIN HYDROCHLORIDE
  3. AMARYL [Concomitant]
     Active Substance: GLIMEPIRIDE

REACTIONS (6)
  - Pollakiuria [Unknown]
  - Dehydration [Unknown]
  - Blood glucose decreased [Unknown]
  - Insomnia [Unknown]
  - Weight decreased [Unknown]
  - Dysgeusia [Unknown]
